FAERS Safety Report 4755014-9 (Version None)
Quarter: 2005Q3

REPORT INFORMATION
  Report Type: 
  Country: None (occurrence: None)
  Receive Date: 20050829
  Receipt Date: 20050818
  Transmission Date: 20060218
  Serious: Yes (Hospitalization)
  Sender: FDA-Public Use
  Company Number: US-JNJFOC-20050804691

PATIENT
  Sex: Female
  Weight: 70.31 kg

DRUGS (2)
  1. TOPAMAX [Suspect]
     Route: 048
     Dates: start: 20050501, end: 20050820
  2. BUPRENEX [Concomitant]

REACTIONS (6)
  - BURNING SENSATION [None]
  - CHEST PAIN [None]
  - HYPERTENSION [None]
  - HYPOAESTHESIA [None]
  - PALPITATIONS [None]
  - PARAESTHESIA ORAL [None]
